FAERS Safety Report 7014630-4 (Version None)
Quarter: 2010Q3

REPORT INFORMATION
  Report Type: 
  Country: None (occurrence: None)
  Receive Date: 20100927
  Receipt Date: 20100914
  Transmission Date: 20110219
  Serious: Yes (Death, Hospitalization)
  Sender: FDA-Public Use
  Company Number: NL-GENZYME-CLOF-1001207

PATIENT
  Sex: Female

DRUGS (28)
  1. EVOLTRA [Suspect]
     Indication: ACUTE LEUKAEMIA
  2. LOPERAMIDE [Concomitant]
     Indication: PRODUCT USED FOR UNKNOWN INDICATION
  3. ACTRAPID [Concomitant]
     Indication: PRODUCT USED FOR UNKNOWN INDICATION
  4. TACROLIMUS [Concomitant]
     Indication: PRODUCT USED FOR UNKNOWN INDICATION
  5. BUDESONIDE [Concomitant]
     Indication: PRODUCT USED FOR UNKNOWN INDICATION
  6. PROMETHAZINE [Concomitant]
     Indication: PRODUCT USED FOR UNKNOWN INDICATION
  7. INFLIXIMAB [Concomitant]
     Indication: PRODUCT USED FOR UNKNOWN INDICATION
  8. PREDNISOLON [Concomitant]
     Indication: PRODUCT USED FOR UNKNOWN INDICATION
  9. CALCIUM GLUBIONATE [Concomitant]
     Indication: PRODUCT USED FOR UNKNOWN INDICATION
  10. OXAZEPAM [Concomitant]
     Indication: PRODUCT USED FOR UNKNOWN INDICATION
  11. NOVORAPID [Concomitant]
     Indication: PRODUCT USED FOR UNKNOWN INDICATION
  12. SOLUTIONS FOR PARENTERAL NUTRITION [Concomitant]
     Indication: PRODUCT USED FOR UNKNOWN INDICATION
  13. CALCIUM CHLORIDE [Concomitant]
     Indication: PRODUCT USED FOR UNKNOWN INDICATION
  14. VORICONAZOLE [Concomitant]
     Indication: PRODUCT USED FOR UNKNOWN INDICATION
  15. PROGRAFT [Concomitant]
     Indication: PRODUCT USED FOR UNKNOWN INDICATION
  16. IMIPENEM [Concomitant]
     Indication: PRODUCT USED FOR UNKNOWN INDICATION
  17. ALBUMIN (HUMAN) [Concomitant]
     Indication: PRODUCT USED FOR UNKNOWN INDICATION
  18. SODIUM BICARBONATE [Concomitant]
     Indication: PRODUCT USED FOR UNKNOWN INDICATION
  19. CALCIUM CHLORIDE [Concomitant]
  20. VALACYCLOVIR [Concomitant]
     Indication: PRODUCT USED FOR UNKNOWN INDICATION
  21. CYCLOSPORINE [Concomitant]
     Indication: PRODUCT USED FOR UNKNOWN INDICATION
  22. FLUCONAZOLE [Concomitant]
     Indication: PRODUCT USED FOR UNKNOWN INDICATION
  23. METOCLOPRAMIDE [Concomitant]
     Indication: PRODUCT USED FOR UNKNOWN INDICATION
  24. COTRIM [Concomitant]
     Indication: PRODUCT USED FOR UNKNOWN INDICATION
  25. MYCOPHENOLIC ACID [Concomitant]
     Indication: PRODUCT USED FOR UNKNOWN INDICATION
  26. ESOMEPRAZOLE MAGNESIUM [Concomitant]
     Indication: PRODUCT USED FOR UNKNOWN INDICATION
  27. LORAZEPAM [Concomitant]
     Indication: PRODUCT USED FOR UNKNOWN INDICATION
  28. NADROPARIN [Concomitant]
     Indication: PRODUCT USED FOR UNKNOWN INDICATION

REACTIONS (3)
  - ACUTE GRAFT VERSUS HOST DISEASE IN INTESTINE [None]
  - DEHYDRATION [None]
  - RENAL FAILURE [None]
